FAERS Safety Report 25141105 (Version 1)
Quarter: 2025Q1

REPORT INFORMATION
  Report Type: Spontaneous
  Country: US (occurrence: None)
  Receive Date: 20250330
  Receipt Date: 20250330
  Transmission Date: 20250408
  Serious: Yes (Hospitalization, Disabling, Other)
  Sender: FDA-CTU
  Company Number: None

PATIENT
  Age: 42 Year
  Sex: Female
  Weight: 47.25 kg

DRUGS (1)
  1. HYLENEX RECOMBINANT [Suspect]
     Active Substance: HYALURONIDASE (HUMAN RECOMBINANT)
     Indication: Product used for unknown indication
     Route: 058
     Dates: start: 20240123, end: 20240123

REACTIONS (24)
  - Muscle atrophy [None]
  - Tissue injury [None]
  - Cardiac disorder [None]
  - Cerebral disorder [None]
  - Dry eye [None]
  - Lid sulcus deepened [None]
  - Sinus disorder [None]
  - Thyroid disorder [None]
  - Night sweats [None]
  - Blindness [None]
  - Swelling [None]
  - Liver disorder [None]
  - Renal disorder [None]
  - Menstruation irregular [None]
  - Alopecia [None]
  - Weight decreased [None]
  - Hypersensitivity [None]
  - Dry mouth [None]
  - Neuralgia [None]
  - Facial asymmetry [None]
  - Eye movement disorder [None]
  - Facial paresis [None]
  - Anosmia [None]
  - Granuloma [None]

NARRATIVE: CASE EVENT DATE: 20240201
